FAERS Safety Report 20088730 (Version 2)
Quarter: 2023Q1

REPORT INFORMATION
  Report Type: Spontaneous
  Country: US (occurrence: US)
  Receive Date: 20211119
  Receipt Date: 20230220
  Transmission Date: 20230418
  Serious: Yes (Hospitalization, Other)
  Sender: FDA-Public Use
  Company Number: US-SA-2020SA040564

PATIENT
  Age: 57 Year
  Sex: Male
  Weight: 58.957 kg

DRUGS (21)
  1. FABRAZYME [Suspect]
     Active Substance: AGALSIDASE BETA
     Indication: Lipidosis
     Dosage: 70 MG, QOW
     Route: 042
     Dates: start: 20040706
  2. FABRAZYME [Suspect]
     Active Substance: AGALSIDASE BETA
     Indication: Fabry^s disease
  3. DIPHENHYDRAMINE [Concomitant]
     Active Substance: DIPHENHYDRAMINE
  4. ACETAMINOPHEN [Concomitant]
     Active Substance: ACETAMINOPHEN
  5. STERILE WATER [Concomitant]
     Active Substance: WATER
  6. ASPIRIN [Concomitant]
     Active Substance: ASPIRIN
  7. EPINEPHRINE [Concomitant]
     Active Substance: EPINEPHRINE
  8. COZAAR [Concomitant]
     Active Substance: LOSARTAN POTASSIUM
  9. CALCITRIOL [Concomitant]
     Active Substance: CALCITRIOL
  10. WARFARIN SODIUM [Concomitant]
     Active Substance: WARFARIN SODIUM
  11. BENZONATATE [Concomitant]
     Active Substance: BENZONATATE
  12. ATORVASTATIN CALCIUM [Concomitant]
     Active Substance: ATORVASTATIN CALCIUM
     Dosage: UNK
  13. FERROUS SULFATE [Concomitant]
     Active Substance: FERROUS SULFATE
  14. AMIODARONE [Concomitant]
     Active Substance: AMIODARONE
  15. CALCIUM [Concomitant]
     Active Substance: CALCIUM
  16. SODIUM CHLORIDE [Concomitant]
     Active Substance: SODIUM CHLORIDE
  17. STERILE WATER [Concomitant]
     Active Substance: WATER
  18. SODIUM CHLORIDE [Concomitant]
     Active Substance: SODIUM CHLORIDE
  19. ENVARSUS XR [Concomitant]
     Active Substance: TACROLIMUS
  20. ROPINIROLE [Concomitant]
     Active Substance: ROPINIROLE
  21. ELIQUIS [Concomitant]
     Active Substance: APIXABAN

REACTIONS (3)
  - Hospitalisation [Unknown]
  - Cardiac operation [Unknown]
  - Memory impairment [Unknown]

NARRATIVE: CASE EVENT DATE: 20210109
